FAERS Safety Report 8616373-X (Version None)
Quarter: 2012Q3

REPORT INFORMATION
  Report Type: 
  Country: None (occurrence: None)
  Receive Date: 20120823
  Receipt Date: 20120814
  Transmission Date: 20120928
  Serious: Yes (Hospitalization, Other)
  Sender: FDA-Public Use
  Company Number: US-ABBOTT-12P-163-0969457-00

PATIENT
  Weight: 122.58 kg

DRUGS (36)
  1. ASTEPRO [Concomitant]
     Indication: PRODUCT USED FOR UNKNOWN INDICATION
  2. ALBUTEROL [Concomitant]
     Indication: PRODUCT USED FOR UNKNOWN INDICATION
  3. FUROSEMIDE [Concomitant]
     Indication: PRODUCT USED FOR UNKNOWN INDICATION
  4. LEVOTHYROXINE SODIUM [Concomitant]
     Indication: HYPOTHYROIDISM
  5. OXYGEN [Concomitant]
     Indication: SLEEP APNOEA SYNDROME
     Dosage: USES WITH BIPAP
  6. MAGNESIUM WITH ZINC [Concomitant]
     Indication: PRODUCT USED FOR UNKNOWN INDICATION
  7. HUMIRA [Suspect]
  8. DIOVAN [Concomitant]
     Indication: PRODUCT USED FOR UNKNOWN INDICATION
  9. ASPIRIN [Concomitant]
     Indication: PRODUCT USED FOR UNKNOWN INDICATION
  10. SERTRALINE HYDROCHLORIDE [Concomitant]
     Indication: PANIC ATTACK
  11. FISH OIL [Concomitant]
     Indication: PRODUCT USED FOR UNKNOWN INDICATION
  12. HEPARIN [Suspect]
     Indication: CONTUSION
  13. FLUTICASONE PROPIONATE [Concomitant]
     Indication: PRODUCT USED FOR UNKNOWN INDICATION
  14. METHOTREXATE [Concomitant]
     Indication: PRODUCT USED FOR UNKNOWN INDICATION
  15. CHOLCYRS [Concomitant]
     Indication: PRODUCT USED FOR UNKNOWN INDICATION
  16. ALLEGRA [Concomitant]
     Indication: PRODUCT USED FOR UNKNOWN INDICATION
  17. TRIAMCINOLONE [Concomitant]
     Indication: PRODUCT USED FOR UNKNOWN INDICATION
  18. HYDROCODONE [Concomitant]
     Indication: PRODUCT USED FOR UNKNOWN INDICATION
  19. ALPRAZOLAM [Concomitant]
     Indication: ANXIETY
  20. CALCIUM WITH D [Concomitant]
     Indication: PRODUCT USED FOR UNKNOWN INDICATION
  21. FLUTICASONE PROPIONATE [Concomitant]
     Indication: PRODUCT USED FOR UNKNOWN INDICATION
  22. ZIRTEC D [Concomitant]
     Indication: PRODUCT USED FOR UNKNOWN INDICATION
  23. ALPRAZOLAM [Concomitant]
     Indication: PANIC ATTACK
  24. VITAMIN E [Concomitant]
     Indication: PRODUCT USED FOR UNKNOWN INDICATION
  25. LIDEX GEL [Concomitant]
     Indication: PRODUCT USED FOR UNKNOWN INDICATION
  26. NAPROXEN [Concomitant]
     Indication: PRODUCT USED FOR UNKNOWN INDICATION
  27. DILTIAZEM [Concomitant]
     Indication: BLOOD PRESSURE
  28. HUMIRA [Suspect]
     Indication: PSORIATIC ARTHROPATHY
  29. ALLEGRA-D 12 HOUR [Concomitant]
     Indication: PRODUCT USED FOR UNKNOWN INDICATION
  30. SPIRIVA [Concomitant]
     Indication: PRODUCT USED FOR UNKNOWN INDICATION
  31. METOPROLOL TARTRATE [Concomitant]
     Indication: BLOOD PRESSURE
  32. SERTRALINE HYDROCHLORIDE [Concomitant]
     Indication: ANXIETY
  33. MENS MULTI VITAMIN [Concomitant]
     Indication: PRODUCT USED FOR UNKNOWN INDICATION
  34. CETIRIZINE HCL [Concomitant]
     Indication: PRODUCT USED FOR UNKNOWN INDICATION
  35. FLAX SEED [Concomitant]
     Indication: PRODUCT USED FOR UNKNOWN INDICATION
  36. ASCORBIC ACID [Concomitant]
     Indication: PRODUCT USED FOR UNKNOWN INDICATION

REACTIONS (27)
  - CATARACT [None]
  - CERVICAL SPINAL STENOSIS [None]
  - CHRONIC OBSTRUCTIVE PULMONARY DISEASE [None]
  - WHITE BLOOD CELL COUNT INCREASED [None]
  - TRANSIENT ISCHAEMIC ATTACK [None]
  - ATELECTASIS [None]
  - VOMITING [None]
  - UNEVALUABLE EVENT [None]
  - ATRIAL FIBRILLATION [None]
  - TINNITUS [None]
  - PRECANCEROUS CELLS PRESENT [None]
  - BONE GRAFT [None]
  - HAEMORRHAGE [None]
  - CONTUSION [None]
  - OXYGEN SATURATION DECREASED [None]
  - BLOOD TESTOSTERONE DECREASED [None]
  - GOUT [None]
  - COLONIC FISTULA [None]
  - SPINAL LAMINECTOMY [None]
  - BUNDLE BRANCH BLOCK RIGHT [None]
  - PLATELET COUNT DECREASED [None]
  - ANAL FISSURE [None]
  - HYPOXIA [None]
  - VIITH NERVE PARALYSIS [None]
  - SLEEP APNOEA SYNDROME [None]
  - GASTROINTESTINAL PAIN [None]
  - RECTAL HAEMORRHAGE [None]
